FAERS Safety Report 10264740 (Version 1)
Quarter: 2014Q2

REPORT INFORMATION
  Report Type: Spontaneous
  Country: US (occurrence: US)
  Receive Date: 20140627
  Receipt Date: 20140627
  Transmission Date: 20141212
  Serious: No
  Sender: FDA-Public Use
  Company Number: US-SHIRE-US201400645

PATIENT
  Age: 16 Year
  Sex: Female
  Weight: 53.52 kg

DRUGS (1)
  1. VPRIV [Suspect]
     Indication: GAUCHER^S DISEASE
     Dosage: UNK, 1X/2WKS
     Route: 041
     Dates: start: 20140303

REACTIONS (2)
  - Nausea [Recovered/Resolved]
  - Asthenia [Unknown]
